FAERS Safety Report 6246606-9 (Version None)
Quarter: 2009Q2

REPORT INFORMATION
  Report Type: 
  Country: None (occurrence: None)
  Receive Date: 20090626
  Receipt Date: 20090618
  Transmission Date: 20091009
  Serious: Yes (Death)
  Sender: FDA-Public Use
  Company Number: IT-PFIZER INC-2009230870

PATIENT
  Age: 69 Year

DRUGS (7)
  1. FLAGYL [Suspect]
     Indication: CLOSTRIDIUM DIFFICILE COLITIS
     Dosage: 1000 MG DAILY
     Route: 048
     Dates: start: 20090218, end: 20090228
  2. ALLOPURINOL [Suspect]
     Indication: HYPERURICAEMIA
     Dosage: 100 MG DAILY
     Dates: start: 20090211, end: 20090310
  3. FUROSEMIDE [Concomitant]
     Indication: RENAL FAILURE CHRONIC
     Dosage: 500 MG, UNK
     Route: 048
     Dates: start: 20081230, end: 20090310
  4. ARANESP [Concomitant]
     Indication: RENAL FAILURE CHRONIC
     Dosage: 30 UG, UNK
     Route: 058
     Dates: start: 20081230
  5. PANTOPRAZOLE SODIUM [Concomitant]
     Indication: PROPHYLAXIS AGAINST GASTROINTESTINAL ULCER
     Dosage: 20 MG, UNK
     Route: 048
     Dates: start: 20081230
  6. SIVASTIN [Concomitant]
     Dosage: 20 MG, UNK
     Route: 048
     Dates: start: 20081231
  7. FERROFOLIN [Concomitant]
     Indication: ANAEMIA
     Dosage: UNK
     Dates: start: 20090211, end: 20090310

REACTIONS (2)
  - OVERLAP SYNDROME [None]
  - TOXIC EPIDERMAL NECROLYSIS [None]
